FAERS Safety Report 18385797 (Version 1)
Quarter: 2020Q4

REPORT INFORMATION
  Report Type: Spontaneous
  Country: JP (occurrence: JP)
  Receive Date: 20201015
  Receipt Date: 20201015
  Transmission Date: 20210114
  Serious: Yes (Hospitalization, Other)
  Sender: FDA-Public Use
  Company Number: JP-ROCHE-2696063

PATIENT
  Age: 6 Decade
  Sex: Female

DRUGS (3)
  1. AVASTIN [Suspect]
     Active Substance: BEVACIZUMAB
     Indication: COLON CANCER
     Dosage: DOSAGE IS UNCERTAIN.?MOST RECENT DOSE PRIOR TO AE 13/JAN/2017
     Route: 042
     Dates: start: 20170113
  2. XELODA [Suspect]
     Active Substance: CAPECITABINE
     Indication: COLON CANCER
     Dosage: DOSAGE IS UNCERTAIN.?MOST RECENT DOSE PRIOR TO AE 20/JAN/2017
     Route: 048
     Dates: start: 20170113
  3. OXALIPLATIN. [Suspect]
     Active Substance: OXALIPLATIN
     Indication: COLON CANCER
     Dosage: MOST RECENT DOSE PRIOR TO AE 13/JAN/2017
     Route: 041
     Dates: start: 20170113

REACTIONS (5)
  - Cancer pain [Unknown]
  - Dysuria [Recovering/Resolving]
  - Hepatic failure [Unknown]
  - Haematuria [Recovering/Resolving]
  - Decreased appetite [Not Recovered/Not Resolved]

NARRATIVE: CASE EVENT DATE: 20170120
